FAERS Safety Report 10648502 (Version 2)
Quarter: 2014Q4

REPORT INFORMATION
  Report Type: Report from Study
  Country: CH (occurrence: CH)
  Receive Date: 20141212
  Receipt Date: 20141229
  Transmission Date: 20150529
  Serious: Yes (Hospitalization)
  Sender: FDA-Public Use
  Company Number: CH-BAYER-2014-179482

PATIENT
  Age: 70 Year
  Sex: Male
  Weight: 83 kg

DRUGS (6)
  1. ALDACTONE [Concomitant]
     Active Substance: SPIRONOLACTONE
     Dosage: 50 MG, QD
     Dates: start: 20140930
  2. QUANTALAN [Concomitant]
     Active Substance: CHOLESTYRAMINE
     Dosage: 4 G, TID
     Dates: start: 20140926
  3. SORAFENIB (RAF KINASE INHIBITOR) [Suspect]
     Active Substance: SORAFENIB
     Indication: HEPATOCELLULAR CARCINOMA
     Dosage: 42 G
     Route: 048
     Dates: start: 20140915, end: 20141110
  4. YTTRIUM (90 Y) [Suspect]
     Active Substance: YTTRIUM Y-90
     Indication: HEPATOCELLULAR CARCINOMA
     Dosage: UNK
     Dates: start: 20140910, end: 20140910
  5. PRIMOVIST [Suspect]
     Active Substance: GADOXETATE DISODIUM
     Indication: HEPATOCELLULAR CARCINOMA
     Dosage: 10 ML, ONCE
     Route: 042
     Dates: start: 20140821, end: 20140821
  6. LASIX [Concomitant]
     Active Substance: FUROSEMIDE
     Dosage: 40 MG, BID
     Dates: start: 20140930

REACTIONS (1)
  - Ascites [Not Recovered/Not Resolved]

NARRATIVE: CASE EVENT DATE: 20141130
